FAERS Safety Report 5715032-0 (Version None)
Quarter: 2008Q2

REPORT INFORMATION
  Report Type: 
  Country: None (occurrence: None)
  Receive Date: 20080423
  Receipt Date: 20080417
  Transmission Date: 20081010
  Serious: Yes (Life-Threatening, Hospitalization)
  Sender: FDA-Public Use
  Company Number: DE-WYE-G01052908

PATIENT
  Sex: Male
  Weight: 77 kg

DRUGS (3)
  1. VENLAFAXINE HCL [Interacting]
     Indication: DEPRESSION
     Route: 048
     Dates: start: 20071123, end: 20071226
  2. ACETYLSALICYLIC ACID SRT [Interacting]
     Indication: HEADACHE
     Route: 048
     Dates: start: 20071226, end: 20071226
  3. DOXEPIN HCL [Suspect]
     Indication: DEPRESSION
     Route: 048
     Dates: start: 20071001, end: 20071226

REACTIONS (3)
  - ANAPHYLACTIC REACTION [None]
  - DRUG INTERACTION [None]
  - TRANSAMINASES INCREASED [None]
